FAERS Safety Report 6902799-9 (Version None)
Quarter: 2010Q3

REPORT INFORMATION
  Report Type: 
  Country: None (occurrence: None)
  Receive Date: 20100803
  Receipt Date: 20080806
  Transmission Date: 20110219
  Serious: No
  Sender: FDA-Public Use
  Company Number: US-PFIZER INC-2008052891

PATIENT
  Sex: Female
  Weight: 59.42 kg

DRUGS (1)
  1. LYRICA [Suspect]
     Indication: POST HERPETIC NEURALGIA
     Route: 048
     Dates: start: 20080617, end: 20080618

REACTIONS (3)
  - AGITATION [None]
  - EMOTIONAL DISORDER [None]
  - FEELING ABNORMAL [None]
